FAERS Safety Report 5907811-1 (Version None)
Quarter: 2008Q4

REPORT INFORMATION
  Report Type: 
  Country: None (occurrence: None)
  Receive Date: 20081003
  Receipt Date: 20080924
  Transmission Date: 20090506
  Serious: Yes (Hospitalization)
  Sender: FDA-Public Use
  Company Number: US-SANOFI-SYNTHELABO-A03200803726

PATIENT
  Sex: Female
  Weight: 83.9 kg

DRUGS (4)
  1. AMBIEN [Suspect]
     Indication: INSOMNIA
     Dosage: 10 TO 20 MG AT NIGHT, TAKING ADDITIONAL TABLETS IN HER SLEEP
     Route: 048
     Dates: start: 19980101, end: 20080801
  2. MELATONIN [Concomitant]
     Indication: DRUG USE FOR UNKNOWN INDICATION
     Dosage: UNK
     Route: 065
  3. TYLENOL (CAPLET) [Concomitant]
     Indication: DRUG USE FOR UNKNOWN INDICATION
     Dosage: UNK
     Route: 065
  4. ZOLPIDEM [Suspect]
     Indication: INSOMNIA
     Dosage: 10 TO 20 MG HS, TAKING ADDITIONAL TABLETS IN HER SLEEP
     Route: 048
     Dates: end: 20080801

REACTIONS (6)
  - AMNESIA [None]
  - DRUG ABUSE [None]
  - DRUG SCREEN FALSE POSITIVE [None]
  - ROAD TRAFFIC ACCIDENT [None]
  - SLEEP-RELATED EATING DISORDER [None]
  - SOMNAMBULISM [None]
